FAERS Safety Report 19905364 (Version 1)
Quarter: 2021Q3

REPORT INFORMATION
  Report Type: Spontaneous
  Country: US (occurrence: US)
  Receive Date: 20210930
  Receipt Date: 20210930
  Transmission Date: 20211014
  Serious: No
  Sender: FDA-Public Use
  Company Number: None

PATIENT
  Age: 68 Year
  Sex: Female
  Weight: 80.74 kg

DRUGS (16)
  1. STOOL SOFTENER (DOCUSATE) [Concomitant]
     Active Substance: DOCUSATE
  2. VITAMIN B COMPLEX [Concomitant]
     Active Substance: CYANOCOBALAMIN\DEXPANTHENOL\NIACINAMIDE\PYRIDOXINE HYDROCHLORIDE\RIBOFLAVIN 5^-PHOSPHATE SODIUM\THIAMINE HYDROCHLORIDE\VITAMIN B COMPLEX
  3. VITAMIN D3 [Concomitant]
     Active Substance: CHOLECALCIFEROL
  4. SYSTANE EYEDROPS [Concomitant]
     Active Substance: POLYETHYLENE GLYCOL 400\PROPYLENE GLYCOL
  5. CYCLOPHOSPHAMIDE (CYTOXAN) [Concomitant]
  6. CARVEDILOL. [Concomitant]
     Active Substance: CARVEDILOL
  7. ACYCLOVIR. [Concomitant]
     Active Substance: ACYCLOVIR
  8. DORZOLAMIDE HCI OPHTHALMIC SOLUTION [Concomitant]
  9. POTASSIUM CHLORIDE 10MEQ ER TABLETS [Suspect]
     Active Substance: POTASSIUM CHLORIDE
     Indication: BLOOD POTASSIUM DECREASED
     Dosage: ?          QUANTITY:3 DF DOSAGE FORM;?
     Route: 048
     Dates: start: 20210721, end: 20210916
  10. DEXAMETHASONE. [Concomitant]
     Active Substance: DEXAMETHASONE
  11. PROBIOTICS [Concomitant]
     Active Substance: PROBIOTICS NOS
  12. LANTANOPROST [Concomitant]
     Active Substance: LATANOPROST
  13. ASPIRIN. [Concomitant]
     Active Substance: ASPIRIN
  14. ZOFRAN [Concomitant]
     Active Substance: ONDANSETRON HYDROCHLORIDE
  15. SYSTANE LUBRICANT EYE OINTMENT [Concomitant]
  16. SERTRALINE [Concomitant]
     Active Substance: SERTRALINE HYDROCHLORIDE

REACTIONS (6)
  - Drug ineffective [None]
  - Dizziness [None]
  - Balance disorder [None]
  - Malaise [None]
  - Product residue present [None]
  - Product substitution issue [None]

NARRATIVE: CASE EVENT DATE: 20210721
